FAERS Safety Report 12237688 (Version 1)
Quarter: 2016Q2

REPORT INFORMATION
  Report Type: Spontaneous
  Country: US (occurrence: None)
  Receive Date: 20160404
  Receipt Date: 20160404
  Transmission Date: 20160815
  Serious: No
  Sender: FDA-Public Use
  Company Number: None

PATIENT
  Age: 62 Year
  Sex: Male
  Weight: 113.4 kg

DRUGS (12)
  1. CRESTOR [Suspect]
     Active Substance: ROSUVASTATIN CALCIUM
     Indication: CORONARY ARTERY DISEASE
     Route: 048
  2. ELIQUIS [Concomitant]
     Active Substance: APIXABAN
  3. ZINC [Concomitant]
     Active Substance: ZINC\ZINC CHLORIDE
  4. TRICOR [Concomitant]
     Active Substance: FENOFIBRATE
  5. CENTRUM SILVER [Concomitant]
     Active Substance: MINERALS\VITAMINS
  6. COQ10 [Concomitant]
     Active Substance: UBIDECARENONE
  7. METOPROLOL. [Concomitant]
     Active Substance: METOPROLOL
  8. RAMIPRIL. [Concomitant]
     Active Substance: RAMIPRIL
  9. FLECAINIDE [Concomitant]
     Active Substance: FLECAINIDE
  10. VITAMIN D3 [Concomitant]
     Active Substance: CHOLECALCIFEROL
  11. CRESTOR [Suspect]
     Active Substance: ROSUVASTATIN CALCIUM
     Indication: HYPERLIPIDAEMIA
     Route: 048
  12. LOW DOSE ASPIRIN [Concomitant]
     Active Substance: ASPIRIN

REACTIONS (5)
  - Amnesia [None]
  - Cognitive disorder [None]
  - Therapy change [None]
  - Learning disorder [None]
  - Condition aggravated [None]

NARRATIVE: CASE EVENT DATE: 20160122
